FAERS Safety Report 10916144 (Version 1)
Quarter: 2015Q1

REPORT INFORMATION
  Report Type: Spontaneous
  Country: US (occurrence: None)
  Receive Date: 20150312
  Receipt Date: 20150312
  Transmission Date: 20150721
  Serious: Yes (Other)
  Sender: FDA-Public Use
  Company Number: None

PATIENT
  Age: 66 Year
  Sex: Female
  Weight: 79.38 kg

DRUGS (1)
  1. BENZEDREX [Suspect]
     Active Substance: PROPYLHEXEDRINE
     Indication: NASAL CONGESTION
     Dosage: NASAL INHALER
     Route: 045
     Dates: start: 20150210, end: 20150210

REACTIONS (7)
  - Euphoric mood [None]
  - Dissociation [None]
  - Respiratory disorder [None]
  - Feeling abnormal [None]
  - Dizziness [None]
  - Limb discomfort [None]
  - Fatigue [None]
